FAERS Safety Report 13199732 (Version 1)
Quarter: 2017Q1

REPORT INFORMATION
  Report Type: Spontaneous
  Country: HR (occurrence: HR)
  Receive Date: 20170208
  Receipt Date: 20170208
  Transmission Date: 20170428
  Serious: Yes (Other)
  Sender: FDA-Public Use
  Company Number: PHHY2017HR016316

PATIENT
  Sex: Male

DRUGS (4)
  1. ZALDIAR [Concomitant]
     Active Substance: ACETAMINOPHEN\TRAMADOL HYDROCHLORIDE
     Indication: OSTEOARTHRITIS
     Dosage: 1 DF, QD (37.5 MG TRAMADOL CHLORIDE AND 325 MG PARACETAMOL)
     Route: 048
  2. ACTOS [Concomitant]
     Active Substance: PIOGLITAZONE HYDROCHLORIDE
     Indication: TYPE 2 DIABETES MELLITUS
     Dosage: 15 MG,
     Route: 048
     Dates: start: 20161215
  3. COUPET [Suspect]
     Active Substance: ROSUVASTATIN CALCIUM
     Indication: ARTERIOSCLEROSIS
     Dosage: 10 MG, QD
     Route: 048
     Dates: start: 20161213, end: 20170103
  4. LIORESAL [Concomitant]
     Active Substance: BACLOFEN
     Indication: PARAPLEGIA
     Dosage: 3 TBL
     Route: 048
     Dates: start: 2016, end: 20170103

REACTIONS (2)
  - Pruritus [Not Recovered/Not Resolved]
  - Dermatitis bullous [Not Recovered/Not Resolved]

NARRATIVE: CASE EVENT DATE: 20170103
